FAERS Safety Report 7688410-0 (Version None)
Quarter: 2011Q3

REPORT INFORMATION
  Report Type: 
  Country: None (occurrence: None)
  Receive Date: 20110817
  Receipt Date: 20110808
  Transmission Date: 20111222
  Serious: Yes (Other)
  Sender: FDA-Public Use
  Company Number: FR-PFIZER INC-2011187294

PATIENT
  Age: 82 Year
  Sex: Male

DRUGS (18)
  1. PANTOPRAZOLE SODIUM [Suspect]
     Dosage: 20 MG, UNK
     Route: 048
     Dates: end: 20110403
  2. ASPIRIN [Suspect]
     Dosage: 75 MG, UNK
     Route: 048
     Dates: end: 20110403
  3. LEVOTHYROXINE SODIUM [Suspect]
     Dosage: 50 UG, UNK
     Route: 048
  4. ALFUZOSIN HCL [Concomitant]
     Dosage: 10 MG, UNK
     Route: 048
     Dates: start: 20110409
  5. INDAPAMIDE [Concomitant]
     Dosage: 1.5 MG, UNK
     Route: 048
     Dates: start: 20110428
  6. TRAMADOL HCL [Suspect]
     Dosage: 200 MG, UNK
     Route: 048
     Dates: start: 20100603, end: 20110403
  7. ATARAX [Concomitant]
     Dosage: 50 MG, UNK
     Route: 048
     Dates: start: 20110413, end: 20110417
  8. PROZAC [Concomitant]
     Dosage: 20 MG, UNK
     Route: 048
     Dates: start: 20110407, end: 20110412
  9. JANUVIA [Suspect]
     Dosage: 100 MG, UNK
     Route: 048
     Dates: start: 20110422, end: 20110518
  10. GLUCOVANCE [Suspect]
     Dosage: 500 MG/ 5MG
     Route: 048
     Dates: end: 20110412
  11. MODOPAR [Suspect]
     Dosage: 2 DF, (50 MG, 12.5MG)
     Route: 048
  12. ZESTORETIC [Suspect]
     Dosage: UNK
     Route: 048
     Dates: end: 20110411
  13. NEXIUM [Concomitant]
     Dosage: 20 MG, UNK
     Route: 048
     Dates: start: 20110403
  14. AMARYL [Concomitant]
     Dosage: 3 MG, UNK
     Route: 048
     Dates: start: 20110412
  15. ZESTRIL [Concomitant]
     Dosage: 20 MG, UNK
     Route: 048
  16. LOVENOX [Concomitant]
     Route: 058
  17. BACTRIM [Concomitant]
     Dosage: 2 DF, UNK
     Route: 048
     Dates: start: 20110409, end: 20110416
  18. GLUCOPHAGE [Concomitant]
     Dosage: 2 G, UNK
     Route: 048
     Dates: start: 20110412

REACTIONS (1)
  - PANCREATITIS CHRONIC [None]
